FAERS Safety Report 5515778-3 (Version None)
Quarter: 2007Q4

REPORT INFORMATION
  Report Type: 
  Country: None (occurrence: None)
  Receive Date: 20071109
  Receipt Date: 20071026
  Transmission Date: 20080405
  Serious: Yes (Hospitalization)
  Sender: FDA-Public Use
  Company Number: GXKR2007PL09315

PATIENT
  Sex: Female
  Weight: 20 kg

DRUGS (2)
  1. OSPEN (NGX)(PHENOXYMETHYLPENICILLIN BENZATHINE) UNKNOWN, 400000/5IU/ML [Suspect]
     Indication: PHARYNGITIS STREPTOCOCCAL
     Dosage: 1200000 IU, ORAL
     Route: 048
     Dates: start: 20070620, end: 20070620
  2. ACETAMINOPHEN [Concomitant]

REACTIONS (4)
  - DYSPNOEA [None]
  - LIP OEDEMA [None]
  - PRURITUS [None]
  - RASH MACULAR [None]
